FAERS Safety Report 23283904 (Version 2)
Quarter: 2024Q1

REPORT INFORMATION
  Report Type: Spontaneous
  Country: TW (occurrence: None)
  Receive Date: 20231211
  Receipt Date: 20240108
  Transmission Date: 20240410
  Serious: Yes (Hospitalization, Other)
  Sender: FDA-Public Use
  Company Number: TW-ACS-20230368

PATIENT
  Age: 73 Year
  Sex: Female
  Weight: 45 kg

DRUGS (3)
  1. CEFTRIAXONE [Suspect]
     Active Substance: CEFTRIAXONE\CEFTRIAXONE SODIUM
     Indication: Urosepsis
     Route: 042
     Dates: start: 20210314, end: 20210316
  2. CEFIXIME [Suspect]
     Active Substance: CEFIXIME
     Indication: Urosepsis
     Route: 048
     Dates: start: 20210408, end: 20210422
  3. MORNIFLUMATE [Suspect]
     Active Substance: MORNIFLUMATE
     Indication: Pyelonephritis chronic
     Dosage: ()
     Route: 040
     Dates: start: 20210316, end: 20210408

REACTIONS (1)
  - Trichoglossia [Recovered/Resolved]

NARRATIVE: CASE EVENT DATE: 20210330
